FAERS Safety Report 22646203 (Version 5)
Quarter: 2024Q3

REPORT INFORMATION
  Report Type: Report from Study
  Country: CO (occurrence: CO)
  Receive Date: 20230627
  Receipt Date: 20240731
  Transmission Date: 20241017
  Serious: Yes (Other)
  Sender: TAKEDA
  Company Number: CO-TAKEDA-2023TUS058359

PATIENT
  Age: 27 Year
  Sex: Female
  Weight: 56 kg

DRUGS (1)
  1. VEDOLIZUMAB [Suspect]
     Active Substance: VEDOLIZUMAB
     Indication: Crohn^s disease
     Dosage: 300 MILLIGRAM
     Route: 042
     Dates: start: 20180613

REACTIONS (7)
  - Crohn^s disease [Unknown]
  - Diarrhoea [Recovered/Resolved]
  - Weight increased [Unknown]
  - Weight decreased [Unknown]
  - Overweight [Unknown]
  - Abdominal pain [Recovered/Resolved]
  - Influenza [Unknown]

NARRATIVE: CASE EVENT DATE: 20230928
